FAERS Safety Report 9422069 (Version 1)
Quarter: 2013Q3

REPORT INFORMATION
  Report Type: Spontaneous
  Country: US (occurrence: US)
  Receive Date: 20130726
  Receipt Date: 20130726
  Transmission Date: 20140515
  Serious: Yes (Other)
  Sender: FDA-Public Use
  Company Number: US-MYLANLABS-2012S1022119

PATIENT
  Age: 64 Year
  Sex: Female
  Weight: 45.81 kg

DRUGS (1)
  1. PAROXETINE HYDROCHLORIDE EXTENDED-RELEASE TABLETS [Suspect]
     Indication: DEPRESSION
     Dosage: X2 DOSES
     Route: 048
     Dates: start: 20080806, end: 20080808

REACTIONS (2)
  - Deafness [Not Recovered/Not Resolved]
  - Tinnitus [Not Recovered/Not Resolved]
